FAERS Safety Report 7352924-3 (Version None)
Quarter: 2011Q1

REPORT INFORMATION
  Report Type: 
  Country: None (occurrence: None)
  Receive Date: 20110315
  Receipt Date: 20110307
  Transmission Date: 20110831
  Serious: Yes (Hospitalization)
  Sender: FDA-Public Use
  Company Number: SE-B.I. PHARMACEUTICALS,INC./RIDGEFIELD-2011-SW-00081SW

PATIENT
  Age: 65 Year
  Sex: Male

DRUGS (2)
  1. COMBIVENT [Suspect]
     Indication: CHRONIC OBSTRUCTIVE PULMONARY DISEASE
     Dates: start: 20110101, end: 20110101
  2. SPIRIVA [Suspect]
     Indication: CHRONIC OBSTRUCTIVE PULMONARY DISEASE
     Route: 055
     Dates: end: 20110101

REACTIONS (6)
  - HYPERCAPNIA [None]
  - OXYGEN SATURATION DECREASED [None]
  - BEDRIDDEN [None]
  - CHRONIC OBSTRUCTIVE PULMONARY DISEASE [None]
  - FORCED EXPIRATORY VOLUME DECREASED [None]
  - URINARY RETENTION [None]
